FAERS Safety Report 15197453 (Version 1)
Quarter: 2018Q3

REPORT INFORMATION
  Report Type: Spontaneous
  Country: US (occurrence: US)
  Receive Date: 20180725
  Receipt Date: 20180725
  Transmission Date: 20181010
  Serious: No
  Sender: FDA-Public Use
  Company Number: US-ABBVIE-18S-163-2294889-00

PATIENT
  Sex: Female
  Weight: 140 kg

DRUGS (2)
  1. LEVOTHYROXINE SODIUM. [Suspect]
     Active Substance: LEVOTHYROXINE SODIUM
     Dosage: 125 ?G, UNK
     Route: 048
  2. LEVOTHYROXINE SODIUM. [Suspect]
     Active Substance: LEVOTHYROXINE SODIUM
     Indication: HYPOTHYROIDISM
     Dosage: 112 ?G, UNK
     Route: 048

REACTIONS (4)
  - Drug ineffective [Unknown]
  - Weight decreased [Unknown]
  - Blood thyroid stimulating hormone increased [Unknown]
  - Fatigue [Unknown]
